FAERS Safety Report 4982292-3 (Version None)
Quarter: 2006Q2

REPORT INFORMATION
  Report Type: 
  Country: None (occurrence: None)
  Receive Date: 20060419
  Receipt Date: 20060327
  Transmission Date: 20061013
  Serious: Yes (Hospitalization, Other)
  Sender: FDA-Public Use
  Company Number: US200603006625

PATIENT
  Age: 72 Year
  Sex: Female

DRUGS (10)
  1. FORTEO [Suspect]
     Indication: OSTEOPOROSIS
     Dates: start: 20051201, end: 20060313
  2. FORTEO PEN (FORTEO PEN) PEN, DISPOSABLE [Concomitant]
  3. CELEBREX [Concomitant]
  4. COUMADIN [Concomitant]
  5. VITAMIN E [Concomitant]
  6. CYANOCOBALAMIN [Concomitant]
  7. NEURONTIN [Concomitant]
  8. MS CONTIN [Concomitant]
  9. BILRON (IRON BILE SALTS) [Concomitant]
  10. ANTIHYPERTENSIVES [Concomitant]

REACTIONS (1)
  - FEMUR FRACTURE [None]
